FAERS Safety Report 8044996-8 (Version None)
Quarter: 2012Q1

REPORT INFORMATION
  Report Type: 
  Country: None (occurrence: None)
  Receive Date: 20120113
  Receipt Date: 20120105
  Transmission Date: 20120608
  Serious: Yes (Hospitalization)
  Sender: FDA-Public Use
  Company Number: PHHY2012VE002450

PATIENT
  Sex: Female

DRUGS (9)
  1. CARDIOPRIL [Concomitant]
  2. PLAGRIL-A [Concomitant]
     Dosage: 75 MG, UNK
  3. LOVAZA [Concomitant]
  4. ZOLEDRONOC ACID [Suspect]
     Dates: start: 20111115
  5. ZOLEDRONOC ACID [Suspect]
     Dosage: 5 MG, UNK
     Route: 042
     Dates: start: 20111211
  6. ACETYLSALICYLIC ACID SRT [Concomitant]
  7. ZOLEDRONOC ACID [Suspect]
     Indication: OSTEOPOROSIS
     Dosage: 5 MG, ONCE A YEAR
     Route: 042
     Dates: start: 20101115
  8. CARVEDILOL [Concomitant]
  9. ATORVASTATIN [Concomitant]

REACTIONS (2)
  - INCORRECT DOSE ADMINISTERED [None]
  - ARRHYTHMIA [None]
